FAERS Safety Report 12548173 (Version 3)
Quarter: 2016Q3

REPORT INFORMATION
  Report Type: Spontaneous
  Country: US (occurrence: US)
  Receive Date: 20160712
  Receipt Date: 20160815
  Transmission Date: 20161109
  Serious: Yes (Other)
  Sender: FDA-Public Use
  Company Number: US-PFIZER INC-2016332466

PATIENT
  Age: 59 Year
  Sex: Female
  Weight: 58.6 kg

DRUGS (7)
  1. GABAPENTIN. [Concomitant]
     Active Substance: GABAPENTIN
     Indication: BIPOLAR DISORDER
     Dosage: TWO 600MG IN THE MORNING, ONE 600MG DURING THE DAY, AND ONE 600MG A NIGHT
     Route: 048
  2. LYRICA [Suspect]
     Active Substance: PREGABALIN
     Indication: ANXIETY
     Dosage: 10 MG, 2X/DAY
     Dates: start: 20160621, end: 20160625
  3. LYRICA [Suspect]
     Active Substance: PREGABALIN
     Indication: DEPRESSION
     Dosage: 25 MG, DAILY (TOOK ONLY 1)
     Route: 048
     Dates: start: 20160703, end: 20160703
  4. CYMBALTA [Concomitant]
     Active Substance: DULOXETINE HYDROCHLORIDE
     Dosage: 60 MG, 1X/DAY
  5. LYRICA [Suspect]
     Active Substance: PREGABALIN
     Indication: FIBROMYALGIA
     Dosage: 25 MG, 2X/DAY
     Route: 048
     Dates: start: 20160621, end: 20160702
  6. GABAPENTIN. [Concomitant]
     Active Substance: GABAPENTIN
     Indication: PAIN
  7. LAMICTAL [Concomitant]
     Active Substance: LAMOTRIGINE
     Dosage: 1.50 MG, 1X/DAY

REACTIONS (10)
  - Crying [Recovered/Resolved]
  - Haemorrhoids [Recovered/Resolved]
  - Feeling of despair [Recovered/Resolved]
  - Feeling abnormal [Unknown]
  - Suicidal ideation [Unknown]
  - Depression [Recovered/Resolved]
  - Apathy [Recovered/Resolved]
  - Indifference [Recovered/Resolved]
  - Mental disorder [Unknown]
  - Intentional product use issue [Recovered/Resolved]

NARRATIVE: CASE EVENT DATE: 20160623
